FAERS Safety Report 4941298-0 (Version None)
Quarter: 2006Q1

REPORT INFORMATION
  Report Type: 
  Country: None (occurrence: None)
  Receive Date: 20060313
  Receipt Date: 20060301
  Transmission Date: 20060701
  Serious: Yes (Other)
  Sender: FDA-Public Use
  Company Number: US-MERCK-0603USA00372

PATIENT

DRUGS (2)
  1. VIOXX [Suspect]
     Route: 048
     Dates: start: 19991111, end: 20030201
  2. VIOXX [Suspect]
     Route: 048
     Dates: start: 20030830, end: 20040501

REACTIONS (1)
  - MYOCARDIAL INFARCTION [None]
